FAERS Safety Report 11272341 (Version 1)
Quarter: 2015Q3

REPORT INFORMATION
  Report Type: Spontaneous
  Country: SE (occurrence: SE)
  Receive Date: 20150715
  Receipt Date: 20150715
  Transmission Date: 20151125
  Serious: Yes (Hospitalization)
  Sender: FDA-Public Use
  Company Number: SE-TEVA-578201ISR

PATIENT
  Age: 59 Year
  Sex: Male

DRUGS (6)
  1. CYCLOPHOSPHAMIDE. [Suspect]
     Active Substance: CYCLOPHOSPHAMIDE
  2. DOXORUBICIN [Suspect]
     Active Substance: DOXORUBICIN
     Route: 065
  3. RITUXIMAB [Suspect]
     Active Substance: RITUXIMAB
  4. PREDNISONE. [Suspect]
     Active Substance: PREDNISONE
  5. ETOPOSIDE. [Suspect]
     Active Substance: ETOPOSIDE
     Route: 065
  6. VINCRISTINE [Suspect]
     Active Substance: VINCRISTINE

REACTIONS (1)
  - Aplastic anaemia [Unknown]
